FAERS Safety Report 10224702 (Version 1)
Quarter: 2014Q2

REPORT INFORMATION
  Report Type: Spontaneous
  Country: US (occurrence: US)
  Receive Date: 20140609
  Receipt Date: 20140609
  Transmission Date: 20141212
  Serious: Yes (Death, Other)
  Sender: FDA-Public Use
  Company Number: US-TAKEDA-2014TUS004465

PATIENT
  Sex: Female

DRUGS (1)
  1. DEXILANT [Suspect]
     Dosage: 60 MG, QD
     Route: 048
     Dates: end: 20140509

REACTIONS (1)
  - Breast cancer [Fatal]
